FAERS Safety Report 9354613 (Version 2)
Quarter: 2013Q2

REPORT INFORMATION
  Report Type: Report from Study
  Country: IL (occurrence: IL)
  Receive Date: 20130618
  Receipt Date: 20130625
  Transmission Date: 20140414
  Serious: Yes (Hospitalization)
  Sender: FDA-Public Use
  Company Number: IL-MERCK-1306ISR007472

PATIENT
  Age: 72 Year
  Sex: Male
  Weight: 75 kg

DRUGS (6)
  1. SITAGLIPTIN PHOSPHATE [Suspect]
     Indication: TYPE 2 DIABETES MELLITUS
     Dosage: UNK
     Route: 048
     Dates: start: 20100119
  2. METFORMIN [Concomitant]
     Indication: TYPE 2 DIABETES MELLITUS
     Dosage: DAILY DOSE 1700MG
     Dates: start: 20080101
  3. ATENOLOL [Concomitant]
     Indication: HYPERTENSION
     Dosage: DAILY DOSE 12.5MG
     Dates: start: 20100119
  4. SIMVASTATIN [Concomitant]
     Indication: HYPERCHOLESTEROLAEMIA
     Dosage: DAILY DOSE 20MG
     Dates: start: 20100119
  5. ASPIRIN [Concomitant]
     Indication: CORONARY ARTERY DISEASE
     Dosage: DAILY DOSE 75MG
     Dates: start: 20100119
  6. VALSARTAN [Concomitant]
     Indication: HYPERTENSION
     Dosage: DAILY DOSE 80MG
     Dates: start: 20100920

REACTIONS (1)
  - Vertigo [Recovered/Resolved]
